FAERS Safety Report 13596601 (Version 2)
Quarter: 2017Q3

REPORT INFORMATION
  Report Type: Spontaneous
  Country: PT (occurrence: PT)
  Receive Date: 20170531
  Receipt Date: 20170808
  Transmission Date: 20171127
  Serious: Yes (Other)
  Sender: FDA-Public Use
  Company Number: PT-ROCHE-1941859

PATIENT
  Age: 60 Year
  Sex: Female
  Weight: 56 kg

DRUGS (4)
  1. METHYLPREDNISOLONE. [Concomitant]
     Active Substance: METHYLPREDNISOLONE
  2. MABTHERA [Suspect]
     Active Substance: RITUXIMAB
     Indication: MANTLE CELL LYMPHOMA
     Route: 042
     Dates: start: 20170529, end: 20170619
  3. MABTHERA [Concomitant]
     Active Substance: RITUXIMAB
     Route: 058
  4. CLEMASTINE [Concomitant]
     Active Substance: CLEMASTINE

REACTIONS (4)
  - Tremor [Recovered/Resolved]
  - Pain in extremity [Recovered/Resolved]
  - Intentional product use issue [Unknown]
  - Off label use [Unknown]

NARRATIVE: CASE EVENT DATE: 20170529
